FAERS Safety Report 15498683 (Version 1)
Quarter: 2018Q4

REPORT INFORMATION
  Report Type: Spontaneous
  Country: US (occurrence: US)
  Receive Date: 20181005
  Receipt Date: 20181005
  Transmission Date: 20190205
  Serious: Yes (Other)
  Sender: FDA-Public Use
  Company Number: None

PATIENT
  Age: 32 Year
  Sex: Male
  Weight: 56.25 kg

DRUGS (13)
  1. SUCRALFATE. [Concomitant]
     Active Substance: SUCRALFATE
  2. MIRTTAZEPINE [Concomitant]
     Dates: start: 20180824
  3. TRAZODONE [Concomitant]
     Active Substance: TRAZODONE HYDROCHLORIDE
     Dates: start: 20180824
  4. DEPAKOTE [Concomitant]
     Active Substance: DIVALPROEX SODIUM
     Dates: start: 20030101
  5. MOM [Concomitant]
     Active Substance: MAGNESIUM HYDROXIDE
  6. ZONISAMIDE. [Concomitant]
     Active Substance: ZONISAMIDE
  7. TIZANIDINE. [Concomitant]
     Active Substance: TIZANIDINE
  8. INTRATHECAL BACLOFEN [Concomitant]
     Active Substance: BACLOFEN
     Dates: start: 20040101
  9. TOPROL XL [Concomitant]
     Active Substance: METOPROLOL SUCCINATE
  10. BANZEL [Suspect]
     Active Substance: RUFINAMIDE
     Indication: EPILEPSY
     Route: 048
     Dates: start: 20180913, end: 20180919
  11. RANITIDINE. [Concomitant]
     Active Substance: RANITIDINE
  12. PROTONIX [Concomitant]
     Active Substance: PANTOPRAZOLE SODIUM
  13. LORATIDINE [Concomitant]
     Active Substance: LORATADINE

REACTIONS (4)
  - Insomnia [None]
  - Tremor [None]
  - Excessive masturbation [None]
  - Intentional self-injury [None]

NARRATIVE: CASE EVENT DATE: 20180919
